FAERS Safety Report 16356557 (Version 2)
Quarter: 2019Q3

REPORT INFORMATION
  Report Type: Spontaneous
  Country: FR (occurrence: FR)
  Receive Date: 20190527
  Receipt Date: 20190704
  Transmission Date: 20191004
  Serious: Yes (Death, Life-Threatening, Hospitalization)
  Sender: FDA-Public Use
  Company Number: FR-SA-2019SA142768

PATIENT
  Age: 57 Year
  Sex: Male
  Weight: 57 kg

DRUGS (9)
  1. IRINOTECAN [Suspect]
     Active Substance: IRINOTECAN
     Indication: RECTAL ADENOCARCINOMA
     Dosage: 280 MG, UNK
     Route: 042
     Dates: start: 20190415, end: 20190415
  2. FOLINIC ACID [Suspect]
     Active Substance: LEUCOVORIN
     Dosage: UNK UNK, UNK
     Route: 065
     Dates: start: 20190416, end: 20190416
  3. ZALTRAP [Suspect]
     Active Substance: ZIV-AFLIBERCEPT
     Dosage: 4 MG/KG, UNK, 4MG/KG (237MG)
     Route: 042
     Dates: start: 20190416, end: 20190416
  4. ZALTRAP [Suspect]
     Active Substance: ZIV-AFLIBERCEPT
     Indication: RECTAL ADENOCARCINOMA
     Dosage: 4 MG/KG, UNK, 4MG/KG (237MG)
     Route: 042
     Dates: start: 20190415, end: 20190415
  5. IRINOTECAN [Suspect]
     Active Substance: IRINOTECAN
     Dosage: 280 MG, UNK
     Route: 042
     Dates: start: 20190416, end: 20190416
  6. FLUOROURACIL. [Suspect]
     Active Substance: FLUOROURACIL
     Dosage: 3250 MG, UNK
     Route: 042
     Dates: start: 20190416, end: 20190416
  7. ZOPICLONE [Concomitant]
     Active Substance: ZOPICLONE
     Dosage: 7.5 MG, UNK
     Route: 048
  8. FLUOROURACIL. [Suspect]
     Active Substance: FLUOROURACIL
     Indication: RECTAL ADENOCARCINOMA
     Dosage: 3250 MG, UNK
     Route: 042
     Dates: start: 20190415, end: 20190415
  9. FOLINIC ACID [Suspect]
     Active Substance: LEUCOVORIN
     Indication: RECTAL ADENOCARCINOMA
     Dosage: UNK UNK, UNK
     Route: 065
     Dates: start: 20190415, end: 20190415

REACTIONS (2)
  - Acute coronary syndrome [Recovered/Resolved]
  - Completed suicide [Fatal]

NARRATIVE: CASE EVENT DATE: 20190418
